FAERS Safety Report 22044594 (Version 2)
Quarter: 2023Q1

REPORT INFORMATION
  Report Type: Report from Study
  Country: US (occurrence: US)
  Receive Date: 20230228
  Receipt Date: 20230302
  Transmission Date: 20230418
  Serious: Yes (Other)
  Sender: FDA-Public Use
  Company Number: US-002147023-NVSC2023US039836

PATIENT
  Sex: Female

DRUGS (1)
  1. TRIAMCINOLONE ACETONIDE [Suspect]
     Active Substance: TRIAMCINOLONE ACETONIDE
     Indication: Psoriasis
     Dosage: 0.1 %, BID
     Route: 061

REACTIONS (5)
  - Basal cell carcinoma [Unknown]
  - Seborrhoeic keratosis [Unknown]
  - Fibrous histiocytoma [Unknown]
  - Papule [Unknown]
  - Melanocytic naevus [Unknown]
